FAERS Safety Report 7101299-3 (Version None)
Quarter: 2010Q4

REPORT INFORMATION
  Report Type: 
  Country: None (occurrence: None)
  Receive Date: 20101115
  Receipt Date: 20101104
  Transmission Date: 20110411
  Serious: Yes (Other)
  Sender: FDA-Public Use
  Company Number: DE-BAXTER-2010BH026761

PATIENT
  Age: 72 Year
  Sex: Male

DRUGS (6)
  1. GAMMAGARD LIQUID [Suspect]
     Indication: POLYNEUROPATHY CHRONIC
     Route: 042
     Dates: start: 20101013, end: 20101013
  2. GAMMAGARD LIQUID [Suspect]
     Indication: OFF LABEL USE
     Route: 042
     Dates: start: 20101013, end: 20101013
  3. GAMMAGARD LIQUID [Suspect]
     Route: 042
     Dates: start: 20101013, end: 20101013
  4. GAMMAGARD LIQUID [Suspect]
     Route: 042
     Dates: start: 20101013, end: 20101013
  5. GAMMAGARD LIQUID [Suspect]
     Route: 042
  6. GAMMAGARD LIQUID [Suspect]
     Route: 042

REACTIONS (1)
  - ANTI-ERYTHROCYTE ANTIBODY POSITIVE [None]
